FAERS Safety Report 13913513 (Version 1)
Quarter: 2017Q3

REPORT INFORMATION
  Report Type: Spontaneous
  Country: US (occurrence: US)
  Receive Date: 20170828
  Receipt Date: 20170828
  Transmission Date: 20171127
  Serious: No
  Sender: FDA-Public Use
  Company Number: US-ROCHE-1136274

PATIENT
  Age: 33 Year
  Sex: Female

DRUGS (5)
  1. NUTROPIN [Suspect]
     Active Substance: SOMATROPIN
     Indication: HYPOPITUITARISM
     Route: 058
     Dates: start: 199912
  2. NUTROPIN [Suspect]
     Active Substance: SOMATROPIN
     Indication: POSTPARTUM HYPOPITUITARISM
     Dosage: DOSE REDUCED TO 10 UNITS
     Route: 058
  3. CLIMARA [Concomitant]
     Active Substance: ESTRADIOL
     Route: 065
  4. SYNTHROID [Concomitant]
     Active Substance: LEVOTHYROXINE SODIUM
     Route: 065
  5. PROMETRIUM [Concomitant]
     Active Substance: PROGESTERONE
     Route: 065

REACTIONS (4)
  - Tendon pain [Unknown]
  - Peripheral swelling [Unknown]
  - Hair growth abnormal [Unknown]
  - Fluid retention [Unknown]

NARRATIVE: CASE EVENT DATE: 20000501
